FAERS Safety Report 12913092 (Version 1)
Quarter: 2016Q4

REPORT INFORMATION
  Report Type: Spontaneous
  Country: US (occurrence: US)
  Receive Date: 20161104
  Receipt Date: 20161104
  Transmission Date: 20170207
  Serious: No
  Sender: FDA-Public Use
  Company Number: US-ANACOR-2016ANA00226

PATIENT
  Sex: Female

DRUGS (2)
  1. KERYDIN [Suspect]
     Active Substance: TAVABOROLE
     Dosage: UNK, 1X/DAY
  2. KERYDIN [Suspect]
     Active Substance: TAVABOROLE
     Dosage: UNK, EVERY 48 HOURS
     Dates: start: 2015

REACTIONS (2)
  - Application site exfoliation [Unknown]
  - Application site vesicles [Unknown]

NARRATIVE: CASE EVENT DATE: 201512
